FAERS Safety Report 17058638 (Version 6)
Quarter: 2023Q1

REPORT INFORMATION
  Report Type: Spontaneous
  Country: JP (occurrence: JP)
  Receive Date: 20191121
  Receipt Date: 20230210
  Transmission Date: 20230417
  Serious: Yes (Hospitalization, Other)
  Sender: FDA-Public Use
  Company Number: JP-ELI_LILLY_AND_COMPANY-JP201911007958

PATIENT
  Age: 64 Year
  Sex: Female

DRUGS (10)
  1. ADCIRCA [Suspect]
     Active Substance: TADALAFIL
     Indication: Pulmonary arterial hypertension
     Dosage: 20 MG, DAILY
     Route: 048
     Dates: start: 20190420, end: 20190424
  2. ADCIRCA [Suspect]
     Active Substance: TADALAFIL
     Indication: Mixed connective tissue disease
     Dosage: 40 MG, DAILY
     Route: 048
     Dates: start: 20190425, end: 20190501
  3. AMBRISENTAN [Suspect]
     Active Substance: AMBRISENTAN
     Indication: Pulmonary arterial hypertension
     Dosage: 5 MG, DAILY
     Route: 048
     Dates: start: 20190430, end: 20190502
  4. AMBRISENTAN [Suspect]
     Active Substance: AMBRISENTAN
     Indication: Mixed connective tissue disease
  5. SOLU-MEDROL [Concomitant]
     Active Substance: METHYLPREDNISOLONE SODIUM SUCCINATE
     Indication: Mixed connective tissue disease
     Dosage: 40 MG, DAILY
     Route: 042
     Dates: start: 20190418, end: 20190418
  6. FUROSEMIDE [Concomitant]
     Active Substance: FUROSEMIDE
     Indication: Pleural effusion
     Dosage: 20 MG, DAILY
     Dates: start: 20190405
  7. CYCLOPHOSPHAMIDE [Concomitant]
     Active Substance: CYCLOPHOSPHAMIDE
     Indication: Mixed connective tissue disease
     Dosage: 15 MG/KG, DAILY
     Dates: start: 20190418
  8. CYCLOPHOSPHAMIDE [Concomitant]
     Active Substance: CYCLOPHOSPHAMIDE
     Dosage: 570 MG
     Dates: start: 20190422, end: 20190422
  9. SPIRONOLACTONE [Concomitant]
     Active Substance: SPIRONOLACTONE
     Indication: Product used for unknown indication
  10. SILDENAFIL CITRATE [Concomitant]
     Active Substance: SILDENAFIL CITRATE
     Indication: Product used for unknown indication
     Dosage: 60 MG, DAILY

REACTIONS (2)
  - Pulmonary vein occlusion [Recovered/Resolved]
  - Respiratory disorder [Recovered/Resolved]

NARRATIVE: CASE EVENT DATE: 20190429
